FAERS Safety Report 9667138 (Version 2)
Quarter: 2015Q1

REPORT INFORMATION
  Report Type: Spontaneous
  Country: US (occurrence: US)
  Receive Date: 20131104
  Receipt Date: 20150312
  Transmission Date: 20150721
  Serious: No
  Sender: FDA-Public Use
  Company Number: US-BIOGENIDEC-2013BI090046

PATIENT
  Age: 54 Year
  Sex: Female

DRUGS (11)
  1. BENAZEPRIL [Concomitant]
     Active Substance: BENAZEPRIL\BENAZEPRIL HYDROCHLORIDE
  2. OSCAL [Concomitant]
     Active Substance: CALCIUM CARBONATE
  3. PREDNISONE. [Concomitant]
     Active Substance: PREDNISONE
  4. TECFIDERA [Suspect]
     Active Substance: DIMETHYL FUMARATE
     Indication: PRODUCT USED FOR UNKNOWN INDICATION
     Route: 048
  5. ZYRTEC [Concomitant]
     Active Substance: CETIRIZINE HYDROCHLORIDE
  6. MINIVELLE [Concomitant]
     Active Substance: ESTRADIOL
  7. PROLIA [Concomitant]
     Active Substance: DENOSUMAB
  8. TECFIDERA [Suspect]
     Active Substance: DIMETHYL FUMARATE
     Indication: PRODUCT USED FOR UNKNOWN INDICATION
     Dates: start: 20130808, end: 20130904
  9. VITAMIN D-3 [Concomitant]
  10. PROTONIX [Concomitant]
     Active Substance: PANTOPRAZOLE SODIUM
  11. VALIUM [Concomitant]
     Active Substance: DIAZEPAM

REACTIONS (3)
  - Rash [Recovered/Resolved]
  - Hypoaesthesia [Unknown]
  - Pruritus [Unknown]

NARRATIVE: CASE EVENT DATE: 201308
